FAERS Safety Report 15143734 (Version 1)
Quarter: 2018Q3

REPORT INFORMATION
  Report Type: Spontaneous
  Country: US (occurrence: US)
  Receive Date: 20180713
  Receipt Date: 20180713
  Transmission Date: 20181010
  Serious: No
  Sender: FDA-Public Use
  Company Number: US-PERRIGO-18US000500

PATIENT
  Age: 75 Year
  Sex: Female

DRUGS (1)
  1. AMMONIUM LACTATE. [Suspect]
     Active Substance: AMMONIUM LACTATE
     Indication: ICHTHYOSIS
     Dosage: UNKNOWN, UNKNOWN
     Route: 061
     Dates: start: 201801

REACTIONS (3)
  - Skin warm [Unknown]
  - Pain of skin [Unknown]
  - Erythema [Unknown]

NARRATIVE: CASE EVENT DATE: 201801
